FAERS Safety Report 15836719 (Version 1)
Quarter: 2019Q1

REPORT INFORMATION
  Report Type: Spontaneous
  Country: US (occurrence: US)
  Receive Date: 20190115
  Receipt Date: 20190115
  Transmission Date: 20190417
  Serious: No
  Sender: FDA-Public Use
  Company Number: None

PATIENT
  Age: 59 Year
  Sex: Female
  Weight: 145.15 kg

DRUGS (1)
  1. SIMPONI ARIA [Suspect]
     Active Substance: GOLIMUMAB
     Indication: RHEUMATOID ARTHRITIS
     Dosage: INFUSE 2 MG/KG (290 MG) INTRAVENOUSLY AT WEEK 0, 4, THEN EVERY 8 WEEKS
     Route: 042
     Dates: start: 201709

REACTIONS (2)
  - Chronic obstructive pulmonary disease [None]
  - Asthma [None]
